FAERS Safety Report 6569588-9 (Version None)
Quarter: 2010Q1

REPORT INFORMATION
  Report Type: 
  Country: None (occurrence: None)
  Receive Date: 20100204
  Receipt Date: 20100127
  Transmission Date: 20100710
  Serious: Yes (Life-Threatening, Hospitalization)
  Sender: FDA-Public Use
  Company Number: CZ-NOVOPROD-302615

PATIENT
  Age: 56 Year
  Sex: Female

DRUGS (1)
  1. INSULATARD [Suspect]
     Indication: DRUG ABUSE
     Dosage: 100 IU, SINGLE

REACTIONS (3)
  - HYPOGLYCAEMIC COMA [None]
  - INTENTIONAL OVERDOSE [None]
  - SUICIDE ATTEMPT [None]
